FAERS Safety Report 11363276 (Version 1)
Quarter: 2015Q3

REPORT INFORMATION
  Report Type: Spontaneous
  Country: ES (occurrence: None)
  Receive Date: 20150807
  Receipt Date: 20150807
  Transmission Date: 20151125
  Serious: Yes (Other)
  Sender: FDA-Public Use
  Company Number: NSR_02189_2015

PATIENT
  Age: 47 Year
  Sex: Male

DRUGS (2)
  1. PROPANOLOL (PROPANOLOL) [Suspect]
     Active Substance: PROPRANOLOL HYDROCHLORIDE
     Indication: TREMOR
     Dosage: 1X/12 HOURS
  2. FLECAINIDE [Concomitant]
     Active Substance: FLECAINIDE

REACTIONS (2)
  - Palpitations [None]
  - Atrial fibrillation [None]
